FAERS Safety Report 9361378 (Version 2)
Quarter: 2013Q2

REPORT INFORMATION
  Report Type: Report from Study
  Country: CA (occurrence: CA)
  Receive Date: 20130621
  Receipt Date: 20130628
  Transmission Date: 20140414
  Serious: Yes (Other)
  Sender: FDA-Public Use
  Company Number: CA-JNJFOC-20130611742

PATIENT
  Sex: Female
  Weight: 59.9 kg

DRUGS (5)
  1. REMICADE [Suspect]
     Indication: COLITIS ULCERATIVE
     Route: 042
     Dates: start: 20130402
  2. SALOFALK [Suspect]
     Indication: PRODUCT USED FOR UNKNOWN INDICATION
     Route: 065
  3. IMURAN [Concomitant]
     Route: 065
  4. PREDNISONE [Concomitant]
     Route: 065
  5. CORTIFOAM [Concomitant]
     Route: 065

REACTIONS (2)
  - Thrombosis [Unknown]
  - Alopecia [Unknown]
